FAERS Safety Report 25715401 (Version 1)
Quarter: 2025Q3

REPORT INFORMATION
  Report Type: Spontaneous
  Country: JP (occurrence: JP)
  Receive Date: 20250822
  Receipt Date: 20250822
  Transmission Date: 20251021
  Serious: Yes (Hospitalization)
  Sender: LEO PHARM
  Company Number: None

PATIENT
  Age: 50 Year
  Sex: Female
  Weight: 91 kg

DRUGS (8)
  1. TACLONEX [Suspect]
     Active Substance: BETAMETHASONE DIPROPIONATE\CALCIPOTRIENE\CALCIPOTRIENE HYDRATE
     Indication: Benign familial pemphigus
  2. BETAMETHASONE [Suspect]
     Active Substance: BETAMETHASONE
     Indication: Benign familial pemphigus
  3. BETAMETHASONE [Suspect]
     Active Substance: BETAMETHASONE
     Indication: Benign familial pemphigus
     Dosage: THE DOSE OF BETAMETHASONE WAS REDUCED TO 15 G/DAY
  4. CLOBETASOL [Suspect]
     Active Substance: CLOBETASOL
     Indication: Benign familial pemphigus
     Dosage: SIMPLE APPLICATION DOSES OF UP TO 50 G/DAY.
  5. APREMILAST [Concomitant]
     Active Substance: APREMILAST
     Indication: Product used for unknown indication
  6. HYDROCORTISONE [Suspect]
     Active Substance: HYDROCORTISONE
     Indication: Steroid withdrawal syndrome
     Dosage: THE HYDROCORTISONE DOSE WAS REDUCED TO 15 MG/DAY
  7. HYDROCORTISONE [Suspect]
     Active Substance: HYDROCORTISONE
     Indication: Steroid withdrawal syndrome
     Dosage: NINE DAYS AFTER HER INITIAL VISIT TO THE DEPARTMENT, THE HYDROCORTISONE DOSE WAS INCREASED TO 20 MG/
  8. HYDROCORTISONE [Suspect]
     Active Substance: HYDROCORTISONE
     Indication: Steroid withdrawal syndrome
     Dosage: AT A DOSE OF 15 MG/DAY

REACTIONS (5)
  - Insomnia [Unknown]
  - Pseudo Cushing^s syndrome [Unknown]
  - Product use in unapproved indication [Unknown]
  - Oral candidiasis [Unknown]
  - Adrenal insufficiency [Unknown]
